FAERS Safety Report 8224000-9 (Version None)
Quarter: 2012Q1

REPORT INFORMATION
  Report Type: 
  Country: None (occurrence: None)
  Receive Date: 20120321
  Receipt Date: 20120314
  Transmission Date: 20120608
  Serious: Yes (Other)
  Sender: FDA-Public Use
  Company Number: PHHY2010US62242

PATIENT
  Sex: Female

DRUGS (2)
  1. RECLAST [Suspect]
     Dosage: UNK UKN, UNK
     Route: 042
  2. ACTONEL [Suspect]
     Dosage: UNK UKN, UNK

REACTIONS (2)
  - ABDOMINAL DISCOMFORT [None]
  - FALL [None]
